FAERS Safety Report 10881598 (Version 1)
Quarter: 2015Q1

REPORT INFORMATION
  Report Type: Report from Study
  Country: US (occurrence: US)
  Receive Date: 20150303
  Receipt Date: 20150303
  Transmission Date: 20150721
  Serious: Yes (Hospitalization)
  Sender: FDA-Public Use
  Company Number: US-ABBVIE-15K-163-1352072-00

PATIENT
  Age: 52 Year
  Sex: Female
  Weight: 68.1 kg

DRUGS (5)
  1. HUMIRA [Suspect]
     Active Substance: ADALIMUMAB
     Indication: CROHN^S DISEASE
     Dosage: LOADING
     Route: 065
     Dates: start: 201407, end: 201407
  2. PAREGORIC [Concomitant]
     Active Substance: MORPHINE
     Indication: PRODUCT USED FOR UNKNOWN INDICATION
  3. HUMIRA [Suspect]
     Active Substance: ADALIMUMAB
     Route: 065
     Dates: start: 201407, end: 201407
  4. HUMIRA [Suspect]
     Active Substance: ADALIMUMAB
     Route: 065
     Dates: start: 201408, end: 201409
  5. IMODIUM [Concomitant]
     Active Substance: LOPERAMIDE HYDROCHLORIDE
     Indication: PRODUCT USED FOR UNKNOWN INDICATION

REACTIONS (8)
  - Blood chromogranin A increased [Unknown]
  - Hypoaesthesia [Recovered/Resolved]
  - Diarrhoea [Not Recovered/Not Resolved]
  - Blood gastrin increased [Not Recovered/Not Resolved]
  - Hyperhidrosis [Recovered/Resolved]
  - Drug ineffective [Recovered/Resolved]
  - Peripheral swelling [Recovered/Resolved]
  - Blood magnesium decreased [Not Recovered/Not Resolved]

NARRATIVE: CASE EVENT DATE: 2014
